FAERS Safety Report 7422780-3 (Version None)
Quarter: 2011Q2

REPORT INFORMATION
  Report Type: 
  Country: None (occurrence: None)
  Receive Date: 20110419
  Receipt Date: 20110412
  Transmission Date: 20111010
  Serious: Yes (Other)
  Sender: FDA-Public Use
  Company Number: HR-ABBOTT-11P-216-0718692-00

PATIENT
  Age: 46 Year
  Sex: Female

DRUGS (3)
  1. DEPAKENE [Suspect]
     Indication: EPILEPSY
     Dosage: DAILY, EXTENDED RELEASE
     Route: 048
     Dates: start: 20080901
  2. OXCARBAZEPINE [Suspect]
     Indication: EPILEPSY
     Route: 048
     Dates: start: 20080901
  3. PHEMITON [Suspect]
     Indication: EPILEPSY
     Route: 048
     Dates: start: 20080901

REACTIONS (2)
  - LEUKOPENIA [None]
  - GAMMA-GLUTAMYLTRANSFERASE INCREASED [None]
